FAERS Safety Report 23306397 (Version 2)
Quarter: 2023Q4

REPORT INFORMATION
  Report Type: Report from Study
  Country: US (occurrence: US)
  Receive Date: 20231218
  Receipt Date: 20231222
  Transmission Date: 20240110
  Serious: Yes (Death, Hospitalization)
  Sender: FDA-Public Use
  Company Number: US-JNJFOC-20231234902

PATIENT
  Age: 60 Year
  Sex: Male
  Weight: 88.984 kg

DRUGS (8)
  1. SPRAVATO [Suspect]
     Active Substance: ESKETAMINE
     Indication: Depression
     Dosage: ^84 MG 2 TOTAL DOSES^
     Dates: start: 20230316, end: 20230321
  2. SPRAVATO [Suspect]
     Active Substance: ESKETAMINE
     Dosage: ^56 MG 2 TOTAL DOSES^
     Dates: start: 20230418, end: 20230420
  3. SPRAVATO [Suspect]
     Active Substance: ESKETAMINE
     Dosage: ^84 MG 3 TOTAL DOSES^
     Dates: start: 20230425, end: 20230504
  4. SPRAVATO [Suspect]
     Active Substance: ESKETAMINE
     Dosage: ^56 MG 3 TOTAL DOSES^
     Dates: start: 20230509, end: 20230516
  5. SPRAVATO [Suspect]
     Active Substance: ESKETAMINE
     Dosage: ^84 MG 37 TOTAL DOSES^
     Dates: start: 20230518, end: 20231019
  6. DULOXETINE [Concomitant]
     Active Substance: DULOXETINE
     Indication: Product used for unknown indication
     Route: 065
  7. TRILEPTAL [Concomitant]
     Active Substance: OXCARBAZEPINE
     Indication: Product used for unknown indication
     Route: 065
  8. DOXEPIN [Concomitant]
     Active Substance: DOXEPIN
     Indication: Product used for unknown indication
     Route: 065

REACTIONS (2)
  - Death [Fatal]
  - Thrombosis [Unknown]

NARRATIVE: CASE EVENT DATE: 20230101
